FAERS Safety Report 9896066 (Version 2)
Quarter: 2014Q1

REPORT INFORMATION
  Report Type: Spontaneous
  Country: US (occurrence: US)
  Receive Date: 20140213
  Receipt Date: 20140213
  Transmission Date: 20141002
  Serious: No
  Sender: FDA-Public Use
  Company Number: US-BRISTOL-MYERS SQUIBB COMPANY-19033679

PATIENT
  Age: 59 Year
  Sex: Female
  Weight: 92.97 kg

DRUGS (3)
  1. ORENCIA [Suspect]
     Indication: RHEUMATOID ARTHRITIS
     Dosage: LAST INFUSION WAS ON 17JUN2013?SQ:JUN13
     Route: 042
     Dates: start: 201305
  2. TYLENOL [Concomitant]
     Indication: PREMEDICATION
     Dosage: 2 CAPSULES
  3. MEDROL [Concomitant]

REACTIONS (5)
  - Hand deformity [Unknown]
  - Fatigue [Recovering/Resolving]
  - Somnolence [Unknown]
  - Poor venous access [Unknown]
  - Rheumatoid arthritis [Unknown]
